FAERS Safety Report 7679993-5 (Version None)
Quarter: 2011Q3

REPORT INFORMATION
  Report Type: 
  Country: None (occurrence: None)
  Receive Date: 20110812
  Receipt Date: 20110802
  Transmission Date: 20111222
  Serious: Yes (Life-Threatening, Hospitalization)
  Sender: FDA-Public Use
  Company Number: JP-JNJFOC-20110803326

PATIENT
  Sex: Female
  Weight: 31 kg

DRUGS (5)
  1. METHOTREXATE [Suspect]
     Indication: RHEUMATOID ARTHRITIS
     Route: 048
     Dates: start: 20110204, end: 20110415
  2. METHOTREXATE [Suspect]
     Route: 048
     Dates: end: 20110428
  3. METHOTREXATE [Suspect]
     Route: 048
  4. REMICADE [Suspect]
     Indication: RHEUMATOID ARTHRITIS
     Route: 042
     Dates: start: 20110408
  5. REMICADE [Suspect]
     Route: 042
     Dates: start: 20110328

REACTIONS (5)
  - RESPIRATORY FAILURE [None]
  - BLOOD LACTATE DEHYDROGENASE INCREASED [None]
  - ASPARTATE AMINOTRANSFERASE INCREASED [None]
  - INTERSTITIAL LUNG DISEASE [None]
  - HAEMOGLOBIN DECREASED [None]
